FAERS Safety Report 6673625-0 (Version None)
Quarter: 2010Q1

REPORT INFORMATION
  Report Type: 
  Country: None (occurrence: None)
  Receive Date: 20100329
  Receipt Date: 20090630
  Transmission Date: 20100710
  Serious: Yes (Hospitalization, Other)
  Sender: FDA-Public Use
  Company Number: 2009219296

PATIENT
  Age: 54 Year
  Sex: Female

DRUGS (8)
  1. GEODON [Suspect]
     Indication: BIPOLAR DISORDER
     Dosage: 60 MG, 1X/DAY
     Dates: start: 20090313
  2. PAXIL [Concomitant]
  3. KLONOPIN [Concomitant]
  4. VISTARIL [Concomitant]
  5. PRILOSEC [Concomitant]
  6. LIPITOR [Concomitant]
  7. ATENOLOL [Concomitant]
  8. PERCOCET [Concomitant]

REACTIONS (1)
  - DIABETES MELLITUS [None]
